FAERS Safety Report 8018840-9 (Version None)
Quarter: 2012Q1

REPORT INFORMATION
  Report Type: 
  Country: None (occurrence: None)
  Receive Date: 20120103
  Receipt Date: 20111226
  Transmission Date: 20120608
  Serious: Yes (Other)
  Sender: FDA-Public Use
  Company Number: FR-PFIZER INC-2011313665

PATIENT
  Age: 40 Year
  Sex: Male
  Weight: 85 kg

DRUGS (5)
  1. ZYVOX [Suspect]
     Indication: PNEUMONIA
     Dosage: 600 MG, 2X/DAY
     Dates: start: 20110826, end: 20110829
  2. PIPERACILLIN AND TAZOBACTAM [Suspect]
     Indication: PNEUMONIA
     Dosage: 4 G, 4X/DAY
     Route: 042
     Dates: start: 20110826, end: 20110829
  3. OFLOXACIN [Suspect]
     Indication: PNEUMONIA
     Dosage: 200 MG, 2X/DAY
     Dates: start: 20110829, end: 20110830
  4. FLAGYL [Suspect]
     Indication: PNEUMONIA
     Dosage: 500 MG, 3X/DAY
     Dates: start: 20110829, end: 20110830
  5. CIPROFLOXACIN [Suspect]
     Indication: PNEUMONIA
     Dosage: 400 MG, 3X/DAY
     Route: 042
     Dates: start: 20110826, end: 20110829

REACTIONS (2)
  - MIXED LIVER INJURY [None]
  - CONDITION AGGRAVATED [None]
